FAERS Safety Report 9667725 (Version 1)
Quarter: 2013Q4

REPORT INFORMATION
  Report Type: Spontaneous
  Country: AR (occurrence: AR)
  Receive Date: 20131104
  Receipt Date: 20131104
  Transmission Date: 20140711
  Serious: Yes (Other)
  Sender: FDA-Public Use
  Company Number: AR-PFIZER INC-2013311179

PATIENT
  Age: 30 Year
  Sex: Female

DRUGS (1)
  1. RAPAMUNE [Suspect]
     Indication: LIVER TRANSPLANT
     Dosage: 4 MG, 1X/DAY
     Dates: start: 20090615

REACTIONS (2)
  - Liver disorder [Recovered/Resolved]
  - Off label use [Unknown]
